FAERS Safety Report 21748639 (Version 1)
Quarter: 2022Q4

REPORT INFORMATION
  Report Type: Spontaneous
  Country: US (occurrence: None)
  Receive Date: 20221218
  Receipt Date: 20221218
  Transmission Date: 20230113
  Serious: Yes (Hospitalization, Disabling)
  Sender: FDA-Public Use
  Company Number: None

PATIENT
  Age: 19 Year
  Sex: Male
  Weight: 74.25 kg

DRUGS (2)
  1. DUPIXENT [Suspect]
     Active Substance: DUPILUMAB
     Indication: Asthma
     Dosage: OTHER QUANTITY : 1 INJECTION(S);?OTHER FREQUENCY : 1 PER WEEK;?
     Route: 030
     Dates: start: 20190801, end: 20220701
  2. PREVACID 24 HR [Concomitant]
     Active Substance: LANSOPRAZOLE

REACTIONS (2)
  - Femur fracture [None]
  - Upper limb fracture [None]

NARRATIVE: CASE EVENT DATE: 20220621
